FAERS Safety Report 15156127 (Version 1)
Quarter: 2018Q3

REPORT INFORMATION
  Report Type: Spontaneous
  Country: US (occurrence: US)
  Receive Date: 20180717
  Receipt Date: 20180717
  Transmission Date: 20181010
  Serious: No
  Sender: FDA-Public Use
  Company Number: US-SHIONOGI, INC-2018000920

PATIENT
  Sex: Male

DRUGS (1)
  1. SYMPROIC [Suspect]
     Active Substance: NALDEMEDINE
     Indication: CONSTIPATION
     Dosage: ONCE DAILY FOR 7 DAYS
     Route: 065

REACTIONS (2)
  - Faeces discoloured [Recovered/Resolved]
  - Drug withdrawal syndrome [Recovered/Resolved]
